FAERS Safety Report 16173677 (Version 1)
Quarter: 2019Q2

REPORT INFORMATION
  Report Type: Spontaneous
  Country: US (occurrence: US)
  Receive Date: 20190408
  Receipt Date: 20190408
  Transmission Date: 20190711
  Serious: Yes (Other)
  Sender: FDA-Public Use
  Company Number: None

PATIENT
  Age: 69 Year
  Sex: Female
  Weight: 111.6 kg

DRUGS (22)
  1. IBRANCE [Suspect]
     Active Substance: PALBOCICLIB
     Indication: BREAST CANCER
     Route: 048
     Dates: start: 20181129
  2. FUROSMIDE [Concomitant]
  3. LUTEIN [Concomitant]
     Active Substance: LUTEIN
  4. VITAMIN D NOS [Concomitant]
     Active Substance: VITAMIN D NOS
  5. EYE-VITES [Concomitant]
  6. GABAPENTIN. [Concomitant]
     Active Substance: GABAPENTIN
  7. GLIIPIZIDE [Concomitant]
  8. LIBRAX [Concomitant]
     Active Substance: CHLORDIAZEPOXIDE HYDROCHLORIDE\CLIDINIUM BROMIDE
  9. MELOXICAM. [Concomitant]
     Active Substance: MELOXICAM
  10. ASPIRIN. [Concomitant]
     Active Substance: ASPIRIN
  11. MORPHINE [Concomitant]
     Active Substance: MORPHINE
  12. OMEPRAZOLE. [Concomitant]
     Active Substance: OMEPRAZOLE
  13. CHROMIUM [Concomitant]
     Active Substance: CHROMIC CHLORIDE\CHROMIUM
  14. BENEFIBER [Concomitant]
     Active Substance: STARCH, WHEAT
  15. COENZYME Q10 [Concomitant]
     Active Substance: UBIDECARENONE
  16. GENERLAC [Concomitant]
     Active Substance: LACTULOSE
  17. COLACE [Concomitant]
     Active Substance: DOCUSATE SODIUM
  18. OXYCODONE AND ACETAMINOPHEN [Concomitant]
     Active Substance: ACETAMINOPHEN\OXYCODONE HYDROCHLORIDE
  19. PAROXETINE. [Concomitant]
     Active Substance: PAROXETINE
  20. PROAIR HFA [Concomitant]
     Active Substance: ALBUTEROL SULFATE
  21. PROCHLORPERAINE [Concomitant]
  22. RAMIPRIL. [Concomitant]
     Active Substance: RAMIPRIL

REACTIONS (1)
  - Decreased appetite [None]
